FAERS Safety Report 23122958 (Version 1)
Quarter: 2023Q4

REPORT INFORMATION
  Report Type: Spontaneous
  Country: GB (occurrence: GB)
  Receive Date: 20231030
  Receipt Date: 20231030
  Transmission Date: 20240110
  Serious: Yes (Other)
  Sender: FDA-Public Use
  Company Number: None

PATIENT

DRUGS (1)
  1. FLUTICASONE FUROATE\VILANTEROL TRIFENATATE [Suspect]
     Active Substance: FLUTICASONE FUROATE\VILANTEROL TRIFENATATE
     Indication: Asthma
     Dosage: UNK
     Route: 048
     Dates: start: 20220830, end: 20230601

REACTIONS (7)
  - Cough [Recovered/Resolved with Sequelae]
  - Ankle fracture [Recovered/Resolved with Sequelae]
  - Lower respiratory tract infection [Recovered/Resolved]
  - Increased viscosity of upper respiratory secretion [Recovered/Resolved with Sequelae]
  - Pyrexia [Recovering/Resolving]
  - Nasopharyngitis [Recovered/Resolved with Sequelae]
  - Chronic rhinosinusitis with nasal polyps [Not Recovered/Not Resolved]

NARRATIVE: CASE EVENT DATE: 20220911
